FAERS Safety Report 8056668-4 (Version None)
Quarter: 2012Q1

REPORT INFORMATION
  Report Type: 
  Country: None (occurrence: None)
  Receive Date: 20120119
  Receipt Date: 20110310
  Transmission Date: 20120608
  Serious: No
  Sender: FDA-Public Use
  Company Number: US-SANOFI-AVENTIS-2011SA015173

PATIENT
  Sex: Male

DRUGS (5)
  1. SYNTHROID [Suspect]
     Route: 065
     Dates: start: 20110101
  2. BISOPROLOL FUMARATE [Suspect]
     Indication: HYPERTENSION
     Dosage: 2 TABLETS IN 1 DAY
     Route: 065
  3. LASIX [Suspect]
     Route: 065
     Dates: start: 20110101
  4. LASIX [Suspect]
     Route: 065
     Dates: start: 20110101
  5. SYNTHROID [Suspect]
     Indication: THYROIDECTOMY
     Route: 065
     Dates: start: 19890101, end: 20110101

REACTIONS (1)
  - BLOOD PRESSURE INCREASED [None]
